FAERS Safety Report 5505805-1 (Version None)
Quarter: 2007Q4

REPORT INFORMATION
  Report Type: 
  Country: None (occurrence: None)
  Receive Date: 20071102
  Receipt Date: 20071026
  Transmission Date: 20080405
  Serious: Yes (Other)
  Sender: FDA-Public Use
  Company Number: JP-BOEHRINGER INGELHEIM PHARMACEUTICALS, INC.-2007-BP-23745YA

PATIENT
  Age: 85 Year
  Sex: Male

DRUGS (8)
  1. TAMSULOSIN HCL [Suspect]
     Indication: BENIGN PROSTATIC HYPERPLASIA
     Route: 048
  2. VESICARE [Suspect]
     Indication: HYPERTONIC BLADDER
     Route: 048
     Dates: start: 20070928, end: 20071024
  3. ARTIST [Concomitant]
     Route: 048
  4. LASIX [Concomitant]
     Route: 048
  5. ALDACTONE [Concomitant]
     Route: 048
  6. ENALAPRIL MALEATE [Concomitant]
     Route: 048
  7. AMIODARONE HCL [Concomitant]
     Route: 048
  8. LOCOL [Concomitant]
     Route: 048

REACTIONS (1)
  - BLOOD UREA INCREASED [None]
